FAERS Safety Report 12705028 (Version 1)
Quarter: 2016Q3

REPORT INFORMATION
  Report Type: Spontaneous
  Country: US (occurrence: None)
  Receive Date: 20160831
  Receipt Date: 20160831
  Transmission Date: 20161109
  Serious: Yes (Hospitalization, Disabling)
  Sender: FDA-Public Use
  Company Number: None

PATIENT
  Age: 58 Year
  Sex: Male
  Weight: 65 kg

DRUGS (12)
  1. ALIMTA [Suspect]
     Active Substance: PEMETREXED DISODIUM
     Indication: NON-SMALL CELL LUNG CANCER
  2. LIDOCAINE/PRILOCAINE [Concomitant]
     Active Substance: LIDOCAINE\PRILOCAINE
  3. HYDROCODONE BITARTRATE AND ACETAMINOPHEN [Concomitant]
     Active Substance: ACETAMINOPHEN\HYDROCODONE BITARTRATE
  4. DECADRON [Concomitant]
     Active Substance: DEXAMETHASONE
  5. IPRATROPIUM/ALBUTEROL (COMBIVENT RESPIMAT) [Concomitant]
  6. PROMETHAZINE (PHENERGAN) [Concomitant]
  7. ZOFRAN [Concomitant]
     Active Substance: ONDANSETRON HYDROCHLORIDE
  8. ATENOLOL (TENORMIN) [Concomitant]
  9. PROMETHAZINE/CODEINE [Concomitant]
     Active Substance: CODEINE\PROMETHAZINE
  10. HYDROMORPHONE (DILAUDID) [Concomitant]
  11. PROCHLORPERAZINE MALEATE (COMPAZINE) [Concomitant]
  12. ACETAMINOPHEN (TYLENOL EXTRA STRENGTH) [Concomitant]

REACTIONS (4)
  - Dyspnoea [None]
  - Activities of daily living impaired [None]
  - Lung infiltration [None]
  - Toxicity to various agents [None]

NARRATIVE: CASE EVENT DATE: 20160229
